FAERS Safety Report 4964269-7 (Version None)
Quarter: 2006Q1

REPORT INFORMATION
  Report Type: 
  Country: None (occurrence: None)
  Receive Date: 20060331
  Receipt Date: 20060314
  Transmission Date: 20060701
  Serious: Yes (Hospitalization, Disabling)
  Sender: FDA-Public Use
  Company Number: US200602003538

PATIENT
  Age: 65 Year
  Sex: Female

DRUGS (27)
  1. FORTEO [Suspect]
     Indication: BONE DISORDER
     Dates: start: 20040501
  2. FORTEO [Concomitant]
  3. SODIUM BICARBONATE IN PLASTIC CONTAINER [Concomitant]
  4. PROTONIX (PANITOPRAZOLE) [Concomitant]
  5. TOPROL-XL [Concomitant]
  6. FOLIC ACID [Concomitant]
  7. ZOLOFT [Concomitant]
  8. PREDNISONE TAB [Concomitant]
  9. SYNTHROID [Concomitant]
  10. RESTORIL [Concomitant]
  11. FERROUS SULFATE TAB [Concomitant]
  12. ASPIRIN [Concomitant]
  13. OSCAL 500-D (CALCIUM, COLECALCIFEROL) [Concomitant]
  14. DIGOXIN [Concomitant]
  15. AMITRIPTYLINE (AMITRIPTYLINE) [Concomitant]
  16. HYDRALAZINE HCL [Concomitant]
  17. NORVASC [Concomitant]
  18. IMDUR [Concomitant]
  19. LASIX [Concomitant]
  20. POTASSIUM CHLORIDE [Concomitant]
  21. COMBIVENT /GFR/(PRATROPIUM BROMIDE, SALBUTAMOL SULFATE) [Concomitant]
  22. NEURONTIN [Concomitant]
  23. MS CONTIN [Concomitant]
  24. COMPAZINE [Concomitant]
  25. GLUCOSAMINE (GLUCOSAMINE) [Concomitant]
  26. MEPROBAMATE [Concomitant]
  27. FLOVENT [Concomitant]

REACTIONS (9)
  - FEMUR FRACTURE [None]
  - INTERVERTEBRAL DISC DEGENERATION [None]
  - LUMBAR RADICULOPATHY [None]
  - OSTEOARTHRITIS [None]
  - PERONEAL NERVE PALSY [None]
  - PHARMACEUTICAL PRODUCT COMPLAINT [None]
  - SPINAL COLUMN STENOSIS [None]
  - SPINAL COMPRESSION FRACTURE [None]
  - THORACIC VERTEBRAL FRACTURE [None]
